FAERS Safety Report 13492937 (Version 1)
Quarter: 2017Q2

REPORT INFORMATION
  Report Type: Spontaneous
  Country: US (occurrence: US)
  Receive Date: 20170427
  Receipt Date: 20170427
  Transmission Date: 20170830
  Serious: No
  Sender: FDA-Public Use
  Company Number: US-ROCHE-1216230

PATIENT
  Sex: Male

DRUGS (1)
  1. ERIVEDGE [Suspect]
     Active Substance: VISMODEGIB
     Indication: SKIN LESION
     Route: 065

REACTIONS (4)
  - Abdominal distension [Unknown]
  - Therapy cessation [Unknown]
  - Flatulence [Unknown]
  - Abdominal pain [Unknown]
